FAERS Safety Report 8336077-0 (Version None)
Quarter: 2012Q2

REPORT INFORMATION
  Report Type: 
  Country: None (occurrence: None)
  Receive Date: 20120504
  Receipt Date: 20120419
  Transmission Date: 20120825
  Serious: No
  Sender: FDA-Public Use
  Company Number: US-JNJFOC-20120409148

PATIENT
  Sex: Male
  Weight: 113.4 kg

DRUGS (5)
  1. PERCOCET [Concomitant]
     Indication: PAIN
     Route: 065
     Dates: start: 20110101
  2. FENTANYL-100 [Suspect]
     Indication: PAIN
     Route: 062
  3. FENTANYL-100 [Suspect]
     Route: 062
     Dates: start: 20120101
  4. FENTANYL-100 [Suspect]
     Indication: NERVE INJURY
     Route: 062
  5. FENTANYL-100 [Suspect]
     Route: 062
     Dates: start: 20120101

REACTIONS (3)
  - DRUG ADMINISTERED AT INAPPROPRIATE SITE [None]
  - INADEQUATE ANALGESIA [None]
  - WRONG TECHNIQUE IN DRUG USAGE PROCESS [None]
